FAERS Safety Report 6019951-X (Version None)
Quarter: 2008Q4

REPORT INFORMATION
  Report Type: 
  Country: None (occurrence: None)
  Receive Date: 20081223
  Receipt Date: 20081217
  Transmission Date: 20090506
  Serious: No
  Sender: FDA-Public Use
  Company Number: APP200801240

PATIENT
  Age: 9 Year
  Sex: Male
  Weight: 49.5 kg

DRUGS (10)
  1. CYTARABINE [Suspect]
     Indication: LEUKAEMIA
     Dosage: 40 MG, ONCE, INTRATHECAL
     Route: 037
     Dates: start: 20081215, end: 20081215
  2. ATIVAN [Concomitant]
  3. MORPHINE [Concomitant]
  4. DOXORUBICIN HCL [Concomitant]
  5. VINCRISTINE [Concomitant]
  6. ALLOPURINOL [Concomitant]
  7. TYLENOL WITH CODIENE (PANADEINE CO) [Concomitant]
  8. SOLU-MEDROL [Concomitant]
  9. ZITHROMAX [Concomitant]
  10. CEFEPIME [Concomitant]

REACTIONS (1)
  - CONVULSION [None]
